FAERS Safety Report 22251652 (Version 1)
Quarter: 2023Q2

REPORT INFORMATION
  Report Type: Spontaneous
  Country: US (occurrence: US)
  Receive Date: 20230425
  Receipt Date: 20230425
  Transmission Date: 20230722
  Serious: Yes (Other)
  Sender: FDA-Public Use
  Company Number: US-FreseniusKabi-FK202305151

PATIENT
  Age: 15 Year
  Sex: Male
  Weight: 60 kg

DRUGS (2)
  1. DIPRIVAN [Suspect]
     Active Substance: PROPOFOL
     Indication: Sedation
     Dosage: 250 MCG/KG/H IN ADDITION TO 50 MG BOLUS
     Route: 040
  2. FENTANYL [Suspect]
     Active Substance: FENTANYL
     Indication: Sedation
     Dosage: 50 MCG BOLUS
     Route: 042
     Dates: start: 20230414

REACTIONS (2)
  - Supraventricular tachycardia [Recovered/Resolved]
  - Therapeutic product effect decreased [Unknown]
